FAERS Safety Report 13997956 (Version 1)
Quarter: 2017Q3

REPORT INFORMATION
  Report Type: Spontaneous
  Country: US (occurrence: US)
  Receive Date: 20170921
  Receipt Date: 20170921
  Transmission Date: 20171128
  Serious: No
  Sender: FDA-Public Use
  Company Number: None

PATIENT
  Sex: Female
  Weight: 90 kg

DRUGS (5)
  1. MAGNESIUM [Concomitant]
     Active Substance: MAGNESIUM
  2. SUMATRIPTAN TABLES, USP 50 MG [Suspect]
     Active Substance: SUMATRIPTAN
     Indication: MIGRAINE
     Dosage: ?          QUANTITY:9 TABLET(S);?
     Route: 048
  3. BIRTH CONTROL [Concomitant]
     Active Substance: UNSPECIFIED INGREDIENT
  4. IBUPROFEN. [Concomitant]
     Active Substance: IBUPROFEN
  5. VITAMIN C [Concomitant]
     Active Substance: ASCORBIC ACID

REACTIONS (12)
  - Discomfort [None]
  - Hyperacusis [None]
  - Nausea [None]
  - Dizziness [None]
  - Hypoacusis [None]
  - Headache [None]
  - Abdominal discomfort [None]
  - Balance disorder [None]
  - Communication disorder [None]
  - Chest discomfort [None]
  - Ear discomfort [None]
  - Impaired driving ability [None]

NARRATIVE: CASE EVENT DATE: 20170914
